FAERS Safety Report 20070631 (Version 1)
Quarter: 2021Q4

REPORT INFORMATION
  Report Type: Spontaneous
  Country: CA (occurrence: CA)
  Receive Date: 20211115
  Receipt Date: 20211115
  Transmission Date: 20220303
  Serious: Yes (Hospitalization, Other)
  Sender: FDA-Public Use
  Company Number: CA-PFIZER INC-202101539245

PATIENT

DRUGS (12)
  1. SERTRALINE HYDROCHLORIDE [Suspect]
     Active Substance: SERTRALINE HYDROCHLORIDE
     Dosage: UNK
     Route: 065
  2. ABILIFY [Suspect]
     Active Substance: ARIPIPRAZOLE
     Indication: Schizophrenia
     Dosage: UNK
     Route: 065
  3. ABILIFY [Suspect]
     Active Substance: ARIPIPRAZOLE
     Indication: Schizoaffective disorder depressive type
     Dosage: 5 MG
     Route: 048
  4. ABILIFY [Suspect]
     Active Substance: ARIPIPRAZOLE
     Indication: Depression
     Dosage: UNK
  5. ABILIFY MAINTENA [Suspect]
     Active Substance: ARIPIPRAZOLE
     Indication: Schizophrenia
     Dosage: UNK
     Route: 030
  6. ABILIFY MAINTENA [Suspect]
     Active Substance: ARIPIPRAZOLE
     Indication: Schizoaffective disorder depressive type
     Dosage: UNK
     Route: 065
  7. ABILIFY MAINTENA [Suspect]
     Active Substance: ARIPIPRAZOLE
     Indication: Depression
     Dosage: UNK
     Route: 065
  8. LAMICTAL [Suspect]
     Active Substance: LAMOTRIGINE
     Dosage: 200 MG
     Route: 065
  9. LAMICTAL [Suspect]
     Active Substance: LAMOTRIGINE
     Dosage: 100 MG
     Route: 065
  10. QUETIAPINE [Suspect]
     Active Substance: QUETIAPINE
     Dosage: 25 MG
     Route: 065
  11. QUETIAPINE [Suspect]
     Active Substance: QUETIAPINE
     Dosage: 100 MG
     Route: 065
  12. WELLBUTRIN [Suspect]
     Active Substance: BUPROPION HYDROCHLORIDE
     Dosage: UNK
     Route: 065

REACTIONS (9)
  - Product use in unapproved indication [Not Recovered/Not Resolved]
  - Off label use [Not Recovered/Not Resolved]
  - Prescribed underdose [Not Recovered/Not Resolved]
  - Anxiety [Not Recovered/Not Resolved]
  - Dizziness [Not Recovered/Not Resolved]
  - Headache [Not Recovered/Not Resolved]
  - Infarction [Not Recovered/Not Resolved]
  - Nausea [Not Recovered/Not Resolved]
  - Vertigo [Not Recovered/Not Resolved]
